FAERS Safety Report 10450106 (Version 2)
Quarter: 2014Q3

REPORT INFORMATION
  Report Type: Spontaneous
  Country: JP (occurrence: JP)
  Receive Date: 20140912
  Receipt Date: 20140912
  Transmission Date: 20150326
  Serious: Yes (Other)
  Sender: FDA-Public Use
  Company Number: JP-MERCK-1409JPN003904

PATIENT
  Age: 65 Year
  Sex: Female

DRUGS (3)
  1. FLUTIFORM [Concomitant]
     Active Substance: FLUTICASONE PROPIONATE\FORMOTEROL FUMARATE
     Dosage: 4 DOSE FORM/ DAY
     Route: 055
     Dates: start: 20140822
  2. SINGULAIR [Concomitant]
     Active Substance: MONTELUKAST SODIUM
     Dosage: UNK
     Route: 048
     Dates: start: 20140410
  3. MONTELUKAST [Suspect]
     Active Substance: MONTELUKAST SODIUM
     Indication: ASTHMA
     Dosage: 10 MG, QD
     Route: 048
     Dates: start: 20140822, end: 20140824

REACTIONS (3)
  - Neutropenia [Recovered/Resolved]
  - Epigastric discomfort [Recovered/Resolved]
  - Decreased appetite [Recovered/Resolved]

NARRATIVE: CASE EVENT DATE: 20140823
